FAERS Safety Report 23133171 (Version 2)
Quarter: 2023Q4

REPORT INFORMATION
  Report Type: Report from Study
  Country: US (occurrence: US)
  Receive Date: 20231101
  Receipt Date: 20231109
  Transmission Date: 20240110
  Serious: Yes (Other)
  Sender: FDA-Public Use
  Company Number: US-Accord-387726

PATIENT
  Age: 49 Year
  Sex: Male
  Weight: 87.09 kg

DRUGS (1)
  1. CLOZAPINE [Suspect]
     Active Substance: CLOZAPINE
     Indication: Schizophrenia
     Dosage: 125MG BY MOUTH EVERY MORNING, 300 MG BY MOUTH AT BEDTIME

REACTIONS (1)
  - Neutrophil count abnormal [Unknown]

NARRATIVE: CASE EVENT DATE: 20231016
